FAERS Safety Report 22088305 (Version 1)
Quarter: 2023Q1

REPORT INFORMATION
  Report Type: Spontaneous
  Country: AU (occurrence: AU)
  Receive Date: 20230313
  Receipt Date: 20230313
  Transmission Date: 20230418
  Serious: Yes (Other)
  Sender: FDA-Public Use
  Company Number: AU-BAXTER-2023BAX014826

PATIENT
  Sex: Male
  Weight: 65 kg

DRUGS (6)
  1. DOXORUBICIN [Suspect]
     Active Substance: DOXORUBICIN
     Indication: Plasmablastic lymphoma
     Dosage: 5 CYCLES, AS A PART OF VELCADE-EPOCH THERAPY
     Route: 065
  2. CYCLOPHOSPHAMIDE [Suspect]
     Active Substance: CYCLOPHOSPHAMIDE
     Indication: Plasmablastic lymphoma
     Dosage: 5 CYCLES, AS A PART OF VELCADE-EPOCH THERAPY
     Route: 065
  3. VINCRISTINE SULFATE [Suspect]
     Active Substance: VINCRISTINE SULFATE
     Indication: Plasmablastic lymphoma
     Dosage: 5 CYCLES, AS A PART OF VELCADE-EPOCH THERAPY
     Route: 065
  4. PREDNISONE [Suspect]
     Active Substance: PREDNISONE
     Indication: Plasmablastic lymphoma
     Dosage: 5 CYCLES, AS A PART OF VELCADE-EPOCH THERAPY
     Route: 065
  5. ETOPOSIDE [Suspect]
     Active Substance: ETOPOSIDE
     Indication: Plasmablastic lymphoma
     Dosage: 5 CYCLES, AS A PART OF VELCADE-EPOCH THERAPY
     Route: 065
  6. VELCADE [Suspect]
     Active Substance: BORTEZOMIB
     Indication: Plasmablastic lymphoma
     Dosage: 5 CYCLES, AS A PART OF VELCADE-EPOCH THERAPY
     Route: 065

REACTIONS (3)
  - Plasmablastic lymphoma [Unknown]
  - Disease progression [Unknown]
  - Therapy partial responder [Unknown]
